FAERS Safety Report 5533085-X (Version None)
Quarter: 2008Q1

REPORT INFORMATION
  Report Type: 
  Country: None (occurrence: None)
  Receive Date: 20071130
  Receipt Date: 20071130
  Transmission Date: 20080703
  Serious: Yes (Other)
  Sender: FDA-Public Use
  Company Number: None

PATIENT
  Age: 54 Year
  Sex: Female
  Weight: 63.5036 kg

DRUGS (1)
  1. ZOCOR [Suspect]
     Indication: BLOOD CHOLESTEROL INCREASED
     Dosage: 10 MG  DAILY  PO
     Route: 048
     Dates: start: 20020601, end: 20071124

REACTIONS (12)
  - BODY TEMPERATURE INCREASED [None]
  - EOSINOPHIL COUNT INCREASED [None]
  - EYE SWELLING [None]
  - FULL BLOOD COUNT INCREASED [None]
  - HEPATIC ENZYME ABNORMAL [None]
  - JOINT RANGE OF MOTION DECREASED [None]
  - MONOCYTE COUNT INCREASED [None]
  - MUSCULOSKELETAL PAIN [None]
  - NEUTROPHIL COUNT INCREASED [None]
  - RASH PRURITIC [None]
  - SKIN EXFOLIATION [None]
  - VIRAL INFECTION [None]
